FAERS Safety Report 19149081 (Version 2)
Quarter: 2021Q2

REPORT INFORMATION
  Report Type: Spontaneous
  Country: IT (occurrence: IT)
  Receive Date: 20210416
  Receipt Date: 20210421
  Transmission Date: 20210717
  Serious: Yes (Other)
  Sender: FDA-Public Use
  Company Number: IT-GUERBET-IT-20210030

PATIENT
  Age: 24 Year
  Sex: Female

DRUGS (2)
  1. DOTAREM [Suspect]
     Active Substance: GADOTERATE MEGLUMINE
     Indication: INVESTIGATION
  2. DOTAREM [Suspect]
     Active Substance: GADOTERATE MEGLUMINE
     Indication: MAGNETIC RESONANCE IMAGING HEAD
     Route: 042
     Dates: start: 20201201, end: 20201201

REACTIONS (5)
  - Dysphagia [Recovered/Resolved]
  - Nasal congestion [Recovered/Resolved]
  - Conjunctival hyperaemia [Recovered/Resolved]
  - Dysphonia [Recovered/Resolved]
  - Sneezing [Recovered/Resolved]

NARRATIVE: CASE EVENT DATE: 20201201
